FAERS Safety Report 8032402-9 (Version None)
Quarter: 2012Q1

REPORT INFORMATION
  Report Type: 
  Country: None (occurrence: None)
  Receive Date: 20120109
  Receipt Date: 20120109
  Transmission Date: 20120608
  Serious: Yes (Hospitalization)
  Sender: FDA-Public Use
  Company Number: None

PATIENT
  Age: 76 Year
  Sex: Male
  Weight: 110.9 kg

DRUGS (1)
  1. BUDESONIDE/FORMOTEROL [Suspect]
     Dosage: 2 PUFF(S) BID PO
     Route: 048
     Dates: start: 20110914, end: 20111109

REACTIONS (9)
  - RASH PRURITIC [None]
  - SCRATCH [None]
  - ADVERSE DRUG REACTION [None]
  - SKIN DISORDER [None]
  - HYPERSENSITIVITY [None]
  - DYSPNOEA EXERTIONAL [None]
  - DERMATITIS [None]
  - RASH [None]
  - RASH GENERALISED [None]
